FAERS Safety Report 8007243-9 (Version None)
Quarter: 2011Q4

REPORT INFORMATION
  Report Type: 
  Country: None (occurrence: None)
  Receive Date: 20111227
  Receipt Date: 20111221
  Transmission Date: 20120403
  Serious: Yes (Other)
  Sender: FDA-Public Use
  Company Number: US-B.I. PHARMACEUTICALS,INC./RIDGEFIELD-2011-BP-26473BP

PATIENT
  Sex: Male
  Weight: 95.9 kg

DRUGS (10)
  1. NOVOLOG MIX 70/30 [Concomitant]
     Indication: TYPE 1 DIABETES MELLITUS
     Dosage: INSULIN 70/30 5 UNITS QD
  2. AGGRENOX [Suspect]
     Indication: CEREBROVASCULAR ACCIDENT PROPHYLAXIS
     Dosage: 25MG/200MG X R 12H
     Route: 048
     Dates: start: 20111114, end: 20111116
  3. LISINOPRIL [Concomitant]
     Indication: HYPERTENSION
     Dosage: 40 MG
     Dates: start: 20110701
  4. VIAGRA [Concomitant]
     Dosage: 100 MG
  5. SIMAVASTATIN [Concomitant]
     Indication: BLOOD CHOLESTEROL INCREASED
     Route: 048
     Dates: start: 20110601
  6. VIT D3 [Concomitant]
  7. OMEPRAZOLE [Concomitant]
     Indication: GASTROOESOPHAGEAL REFLUX DISEASE
     Dosage: 40 MG
     Route: 048
  8. M.V.I. [Concomitant]
  9. ASPIRIN [Concomitant]
     Dosage: 325 MG
     Route: 048
  10. NOVOFINE AUTOCOVER [Concomitant]
     Indication: BLOOD GLUCOSE FLUCTUATION

REACTIONS (4)
  - INSOMNIA [None]
  - ANXIETY [None]
  - HEADACHE [None]
  - BLOOD PRESSURE INCREASED [None]
